FAERS Safety Report 16610777 (Version 1)
Quarter: 2019Q3

REPORT INFORMATION
  Report Type: Spontaneous
  Country: US (occurrence: US)
  Receive Date: 20190608
  Receipt Date: 20190608
  Transmission Date: 20191004
  Serious: Yes (Other)
  Sender: FDA-Public Use
  Company Number: None

PATIENT
  Age: 61 Year
  Sex: Female

DRUGS (1)
  1. GLEEVEC [Suspect]
     Active Substance: IMATINIB MESYLATE
     Route: 058
     Dates: start: 20190301

REACTIONS (2)
  - Diarrhoea [None]
  - Oedema peripheral [None]

NARRATIVE: CASE EVENT DATE: 20190603
